FAERS Safety Report 11849422 (Version 1)
Quarter: 2015Q4

REPORT INFORMATION
  Report Type: Spontaneous
  Country: US (occurrence: None)
  Receive Date: 20151217
  Receipt Date: 20151217
  Transmission Date: 20160305
  Serious: Yes (Disabling)
  Sender: FDA-Public Use
  Company Number: None

PATIENT
  Age: 62 Year
  Sex: Female
  Weight: 127.01 kg

DRUGS (12)
  1. DIAZEPAM. [Concomitant]
     Active Substance: DIAZEPAM
  2. ZOLPIDEM [Concomitant]
     Active Substance: ZOLPIDEM\ZOLPIDEM TARTRATE
  3. IBUPROFEN. [Concomitant]
     Active Substance: IBUPROFEN
  4. FUROSEMIDE 40MG ROXANE [Suspect]
     Active Substance: FUROSEMIDE
     Indication: OEDEMA
     Dosage: 1 PILL
     Route: 048
     Dates: start: 20151109, end: 20151115
  5. POTASSIUM [Concomitant]
     Active Substance: POTASSIUM
  6. PROTONIX [Concomitant]
     Active Substance: PANTOPRAZOLE SODIUM
  7. MORPHINE SULFATE. [Concomitant]
     Active Substance: MORPHINE SULFATE
  8. IMATREX [Concomitant]
  9. L-THYROXINE [Concomitant]
     Active Substance: LEVOTHYROXINE
  10. CALCIUM CITRATE [Concomitant]
     Active Substance: CALCIUM CITRATE
  11. RHINOCORT [Concomitant]
     Active Substance: BUDESONIDE
  12. PREMPRO [Concomitant]
     Active Substance: ESTROGENS, CONJUGATED\MEDROXYPROGESTERONE ACETATE

REACTIONS (1)
  - Urinary retention [None]

NARRATIVE: CASE EVENT DATE: 20151109
